FAERS Safety Report 8589155-5 (Version None)
Quarter: 2012Q3

REPORT INFORMATION
  Report Type: 
  Country: None (occurrence: None)
  Receive Date: 20120813
  Receipt Date: 20120807
  Transmission Date: 20120928
  Serious: No
  Sender: FDA-Public Use
  Company Number: US-PFIZER INC-2012192178

PATIENT
  Sex: Male

DRUGS (2)
  1. NORVASC [Suspect]
  2. MAXZIDE [Suspect]

REACTIONS (1)
  - DRUG HYPERSENSITIVITY [None]
